FAERS Safety Report 8854959 (Version 2)
Quarter: 2012Q4

REPORT INFORMATION
  Report Type: Report from Study
  Country: AU (occurrence: AU)
  Receive Date: 20121023
  Receipt Date: 20121102
  Transmission Date: 20130627
  Serious: Yes (Death)
  Sender: FDA-Public Use
  Company Number: AU-MILLENNIUM PHARMACEUTICALS, INC.-2012-07230

PATIENT

DRUGS (20)
  1. VELCADE [Suspect]
     Indication: MULTIPLE MYELOMA
     Dosage: UNK
     Route: 065
     Dates: start: 20120824, end: 20121001
  2. ACICLOVIR [Concomitant]
  3. BACTRIM DS [Concomitant]
  4. METOCLOPRAMIDE [Concomitant]
  5. THYROXINE [Concomitant]
  6. FLUTICASONE [Concomitant]
  7. CHOLECALCIFEROL [Concomitant]
  8. CALCIUM CARBONATE [Concomitant]
  9. ESOMEPRAZOLE [Concomitant]
  10. BRINZOLAMIDE [Concomitant]
  11. OXYCODONE [Concomitant]
  12. FUROSEMIDE [Concomitant]
  13. IRBESARTAN [Concomitant]
  14. POTASSIUM CHLORIDE [Concomitant]
  15. ASPIRIN [Concomitant]
  16. THALIDOMIDE [Concomitant]
     Dosage: 50 mg, UNK
  17. TEMAZEPAM [Concomitant]
  18. DEXAMETHASONE [Concomitant]
  19. TIMOLOL [Concomitant]
  20. SENNA                              /00142201/ [Concomitant]

REACTIONS (1)
  - Plasma cell myeloma [Fatal]
